FAERS Safety Report 5055868-5 (Version None)
Quarter: 2006Q3

REPORT INFORMATION
  Report Type: 
  Country: None (occurrence: None)
  Receive Date: 20060717
  Receipt Date: 20060711
  Transmission Date: 20061208
  Serious: Yes (Hospitalization)
  Sender: FDA-Public Use
  Company Number: TAP2005Q00366

PATIENT
  Age: 80 Year
  Sex: Male
  Weight: 64.8644 kg

DRUGS (3)
  1. LUPRON DEPOT-3 [Suspect]
     Indication: PROSTATE CANCER
     Dosage: 22.5 MG, 1 IN 3 M, INTRAMUSCULAR
     Route: 030
     Dates: start: 20040701
  2. NORCO [Concomitant]
  3. CERVICAL EPIDURAL INJECTION [Concomitant]

REACTIONS (4)
  - CONVULSION [None]
  - CSF VIRUS IDENTIFIED [None]
  - DEPRESSED LEVEL OF CONSCIOUSNESS [None]
  - HERPES VIRUS INFECTION [None]
